FAERS Safety Report 19881088 (Version 1)
Quarter: 2021Q3

REPORT INFORMATION
  Report Type: Spontaneous
  Country: FR (occurrence: FR)
  Receive Date: 20210924
  Receipt Date: 20210924
  Transmission Date: 20211014
  Serious: Yes (Hospitalization, Other)
  Sender: FDA-Public Use
  Company Number: FR-TEVA-2021-FR-1956757

PATIENT
  Age: 77 Year
  Sex: Female

DRUGS (8)
  1. TRAMADOL BASE [Suspect]
     Active Substance: TRAMADOL
     Indication: PAIN
     Dosage: 50MILLIGRAM
     Route: 048
     Dates: start: 20210708, end: 20210805
  2. VELCADE [Suspect]
     Active Substance: BORTEZOMIB
     Indication: PLASMA CELL MYELOMA
     Dosage: 14MILLIGRAM
     Route: 058
     Dates: start: 20210705, end: 20210810
  3. FENTANYL. [Suspect]
     Active Substance: FENTANYL
     Indication: OEDEMA
     Dosage: 12MICROGRAM
     Route: 062
     Dates: start: 20210730
  4. VALACICLOVIR [Suspect]
     Active Substance: VALACYCLOVIR HYDROCHLORIDE
     Indication: ANTI-INFECTIVE THERAPY
     Dosage: 1GRAM
     Route: 048
     Dates: start: 20210717
  5. DARATUMUMAB [Suspect]
     Active Substance: DARATUMUMAB
     Indication: PLASMA CELL MYELOMA
     Dosage: 1800MILLIGRAM
     Route: 058
     Dates: start: 20210705, end: 20210810
  6. BINOCRIT 20 000 UI/0,5 ML, SOLUTION INJECTABLE EN SERINGUE PREREMPLIE [Suspect]
     Active Substance: ERYTHROPOIETIN
     Indication: ANAEMIA
     Dosage: 1DOSAGEFORM
     Route: 058
     Dates: start: 20210705, end: 20210805
  7. DEXAMETHASONE. [Suspect]
     Active Substance: DEXAMETHASONE
     Indication: PLASMA CELL MYELOMA
     Dosage: 9.5MILLIGRAM
     Route: 048
     Dates: start: 20210705, end: 20210818
  8. LASILIX 40 MG, COMPRIME SECABLE [Suspect]
     Active Substance: FUROSEMIDE
     Indication: OEDEMA
     Dosage: SCORED:40MILLIGRAM
     Route: 048
     Dates: start: 202107

REACTIONS (2)
  - Atrial fibrillation [Not Recovered/Not Resolved]
  - Ejection fraction decreased [Not Recovered/Not Resolved]

NARRATIVE: CASE EVENT DATE: 20210802
